FAERS Safety Report 8045669-8 (Version None)
Quarter: 2012Q1

REPORT INFORMATION
  Report Type: 
  Country: None (occurrence: None)
  Receive Date: 20120113
  Receipt Date: 20120102
  Transmission Date: 20120608
  Serious: Yes (Other)
  Sender: FDA-Public Use
  Company Number: BR-PFIZER INC-2011204051

PATIENT
  Age: 12 Year
  Sex: Male
  Weight: 37.4 kg

DRUGS (2)
  1. GENOTROPIN [Suspect]
     Indication: GROWTH HORMONE DEFICIENCY
     Dosage: 1.2 MG, 1X/DAY, 6I NJECTIONS/WEEK
     Route: 058
     Dates: start: 20110708, end: 20110913
  2. GENOTROPIN [Suspect]
     Dosage: UNK
     Route: 058
     Dates: end: 20111212

REACTIONS (5)
  - EXPIRED DRUG ADMINISTERED [None]
  - ABDOMINAL PAIN [None]
  - LIVER DISORDER [None]
  - VOMITING [None]
  - WEIGHT DECREASED [None]
